FAERS Safety Report 8538570-4 (Version None)
Quarter: 2012Q3

REPORT INFORMATION
  Report Type: 
  Country: None (occurrence: None)
  Receive Date: 20120726
  Receipt Date: 20120716
  Transmission Date: 20120928
  Serious: Yes (Other)
  Sender: FDA-Public Use
  Company Number: BR-JNJFOC-20120708330

PATIENT
  Sex: Female
  Weight: 72 kg

DRUGS (3)
  1. REMICADE [Suspect]
     Indication: UVEITIS
     Route: 042
     Dates: start: 20110101, end: 20120301
  2. CORTICOSTEROID [Concomitant]
     Indication: RHEUMATOID ARTHRITIS
     Route: 065
     Dates: start: 19950101
  3. REMICADE [Suspect]
     Indication: RHEUMATOID ARTHRITIS
     Route: 042
     Dates: start: 20110101, end: 20120301

REACTIONS (4)
  - HYPERSENSITIVITY [None]
  - DRUG INEFFECTIVE [None]
  - ANAPHYLACTIC SHOCK [None]
  - TACHYCARDIA [None]
